FAERS Safety Report 4582096-X (Version None)
Quarter: 2005Q1

REPORT INFORMATION
  Report Type: 
  Country: None (occurrence: None)
  Receive Date: 20050119
  Receipt Date: 20031126
  Transmission Date: 20050727
  Serious: Yes (Hospitalization)
  Sender: FDA-Public Use
  Company Number: A03200302849

PATIENT
  Age: 79 Year
  Sex: Male
  Weight: 84.5958 kg

DRUGS (4)
  1. PLAVIX [Suspect]
     Indication: MYOCARDIAL INFARCTION
     Dosage: 75 MG QD -ORAL
     Route: 048
     Dates: start: 20030801
  2. ACETYLSALICYLIC ACID SRT [Concomitant]
  3. THIAMAZOLE [Concomitant]
  4. DIGOXIN [Concomitant]

REACTIONS (2)
  - PRURITUS [None]
  - TRANSIENT ISCHAEMIC ATTACK [None]
